FAERS Safety Report 7744056-7 (Version None)
Quarter: 2011Q3

REPORT INFORMATION
  Report Type: 
  Country: None (occurrence: None)
  Receive Date: 20110912
  Receipt Date: 20110902
  Transmission Date: 20111222
  Serious: Yes (Hospitalization, Other)
  Sender: FDA-Public Use
  Company Number: BR-ASTRAZENECA-2011SE48583

PATIENT
  Age: 65 Year
  Sex: Male
  Weight: 82 kg

DRUGS (9)
  1. BUFFERIN [Concomitant]
     Route: 048
     Dates: start: 20010101
  2. NEXIUM [Suspect]
     Indication: GASTRITIS
     Route: 048
     Dates: start: 20060101, end: 20110201
  3. NEXIUM [Suspect]
     Route: 048
     Dates: start: 20110201
  4. NEXIUM [Suspect]
     Route: 048
     Dates: start: 20110201
  5. PRESSAT [Concomitant]
     Route: 048
     Dates: start: 20010101
  6. CLOPIDOGREL [Concomitant]
     Route: 048
     Dates: start: 20010101
  7. MICARDIS [Concomitant]
     Route: 048
     Dates: start: 20010101
  8. NEXIUM [Suspect]
     Indication: HIATUS HERNIA
     Route: 048
     Dates: start: 20060101, end: 20110201
  9. CRESTOR [Suspect]
     Indication: HYPERCHOLESTEROLAEMIA
     Route: 048
     Dates: start: 20010101

REACTIONS (4)
  - HIATUS HERNIA [None]
  - GASTRITIS [None]
  - SUTURE RUPTURE [None]
  - INSOMNIA [None]
